FAERS Safety Report 6854078-6 (Version None)
Quarter: 2010Q3

REPORT INFORMATION
  Report Type: 
  Country: None (occurrence: None)
  Receive Date: 20100717
  Receipt Date: 20080205
  Transmission Date: 20110219
  Serious: No
  Sender: FDA-Public Use
  Company Number: US-PFIZER INC-2007104780

PATIENT
  Sex: Male
  Weight: 95.454 kg

DRUGS (1)
  1. CHANTIX [Suspect]
     Indication: SMOKING CESSATION THERAPY
     Route: 048
     Dates: start: 20071114

REACTIONS (3)
  - MUSCLE SPASMS [None]
  - RETCHING [None]
  - SPEECH DISORDER [None]
